FAERS Safety Report 19000784 (Version 1)
Quarter: 2021Q1

REPORT INFORMATION
  Report Type: Report from Study
  Country: GB (occurrence: GB)
  Receive Date: 20210312
  Receipt Date: 20210312
  Transmission Date: 20210420
  Serious: Yes (Other)
  Sender: FDA-Public Use
  Company Number: GB-TEVA-2021-GB-1888325

PATIENT
  Sex: Male

DRUGS (6)
  1. VITAMIN B12 [Concomitant]
     Active Substance: CYANOCOBALAMIN
  2. PARACETAMOL [Concomitant]
     Active Substance: ACETAMINOPHEN
  3. VITAMIN D [Concomitant]
     Active Substance: VITAMIN D NOS
  4. COPAXONE [Suspect]
     Active Substance: GLATIRAMER ACETATE
     Indication: MULTIPLE SCLEROSIS
     Route: 058
     Dates: start: 2017
  5. IRON [Concomitant]
     Active Substance: IRON
  6. OMEPRAZOLE. [Concomitant]
     Active Substance: OMEPRAZOLE

REACTIONS (7)
  - Abdominal pain [Unknown]
  - Diarrhoea [Unknown]
  - Therapy interrupted [Unknown]
  - Pain in extremity [Unknown]
  - Myelitis [Unknown]
  - Magnetic resonance imaging brain abnormal [Unknown]
  - Chills [Unknown]
